FAERS Safety Report 9208695 (Version 1)
Quarter: 2013Q2

REPORT INFORMATION
  Report Type: Spontaneous
  Country: US (occurrence: US)
  Receive Date: 20130404
  Receipt Date: 20130404
  Transmission Date: 20140414
  Serious: No
  Sender: FDA-Public Use
  Company Number: US-009507513-1303USA012521

PATIENT
  Age: 67 Year
  Sex: Female

DRUGS (2)
  1. INTRONA [Suspect]
     Indication: MALIGNANT MELANOMA
     Dosage: 5 DAYS PER WEEK
     Route: 042
     Dates: start: 20130201, end: 201303
  2. INTRONA [Suspect]
     Dosage: 3 DF, QW
     Route: 059
     Dates: start: 2013

REACTIONS (6)
  - Dysgeusia [Recovered/Resolved]
  - Dysgeusia [Not Recovered/Not Resolved]
  - Alopecia [Not Recovered/Not Resolved]
  - Fatigue [Not Recovered/Not Resolved]
  - Weight decreased [Unknown]
  - Drug dose omission [Unknown]
